FAERS Safety Report 8000978-3 (Version None)
Quarter: 2011Q4

REPORT INFORMATION
  Report Type: 
  Country: None (occurrence: None)
  Receive Date: 20111219
  Receipt Date: 20111205
  Transmission Date: 20120403
  Serious: Yes (Hospitalization, Other)
  Sender: FDA-Public Use
  Company Number: 2011MA017408

PATIENT
  Sex: Female
  Weight: 66.2252 kg

DRUGS (19)
  1. COUMADIN [Concomitant]
  2. DIFLUCAN [Concomitant]
  3. HUMALOG [Concomitant]
  4. PLAVIX [Concomitant]
  5. POTASSIUM CHLORIDE [Concomitant]
  6. APAP TAB [Concomitant]
  7. ASPIRIN [Concomitant]
  8. FLAGYL [Concomitant]
  9. LEVAQUIN [Concomitant]
  10. ZAROXOLYN [Concomitant]
  11. ACTOS [Concomitant]
  12. CEFTIN [Concomitant]
  13. MILK OF MAGNESIA TAB [Concomitant]
  14. ZOCOR [Concomitant]
  15. DIGOXIN [Suspect]
     Indication: PRODUCT USED FOR UNKNOWN INDICATION
     Dosage: 250  MCG;QD;PO
     Route: 048
     Dates: start: 20071116, end: 20080805
  16. AMARYL [Concomitant]
  17. LASIX [Concomitant]
  18. BACTRIM DS [Concomitant]
  19. DARVOCET-N 100 [Concomitant]

REACTIONS (26)
  - AZOTAEMIA [None]
  - GASTROINTESTINAL HAEMORRHAGE [None]
  - RESPIRATORY RATE INCREASED [None]
  - ATRIAL FIBRILLATION [None]
  - URINARY TRACT INFECTION [None]
  - HAEMORRHOIDAL HAEMORRHAGE [None]
  - RENAL FAILURE ACUTE [None]
  - TOXICITY TO VARIOUS AGENTS [None]
  - HYPOGLYCAEMIA [None]
  - DIVERTICULUM [None]
  - RECTAL HAEMORRHAGE [None]
  - THROMBOSIS [None]
  - INDURATION [None]
  - HYPOVOLAEMIA [None]
  - BLOOD PRESSURE DIASTOLIC DECREASED [None]
  - INTERNATIONAL NORMALISED RATIO INCREASED [None]
  - NAUSEA [None]
  - ASTHENIA [None]
  - COLONIC POLYP [None]
  - BLOOD GLUCOSE INCREASED [None]
  - METABOLIC ACIDOSIS [None]
  - BLOOD PRESSURE SYSTOLIC INCREASED [None]
  - VOMITING [None]
  - DEHYDRATION [None]
  - ANAEMIA [None]
  - PULMONARY CONGESTION [None]
